FAERS Safety Report 19290301 (Version 1)
Quarter: 2021Q2

REPORT INFORMATION
  Report Type: Spontaneous
  Country: US (occurrence: US)
  Receive Date: 20210521
  Receipt Date: 20210521
  Transmission Date: 20210717
  Serious: No
  Sender: FDA-Public Use
  Company Number: US-RADIUS HEALTH INC.-2021US001378

PATIENT
  Sex: Female

DRUGS (1)
  1. TYMLOS [Suspect]
     Active Substance: ABALOPARATIDE
     Indication: PRODUCT USED FOR UNKNOWN INDICATION
     Dosage: 80 MCG, DAILY
     Dates: start: 20210203

REACTIONS (5)
  - Eating disorder symptom [Unknown]
  - Headache [Unknown]
  - Abdominal discomfort [Unknown]
  - Weight decreased [Unknown]
  - Incorrect product administration duration [Unknown]
